FAERS Safety Report 18066947 (Version 1)
Quarter: 2020Q3

REPORT INFORMATION
  Report Type: Spontaneous
  Country: US (occurrence: US)
  Receive Date: 20200724
  Receipt Date: 20200724
  Transmission Date: 20201103
  Serious: No
  Sender: FDA-Public Use
  Company Number: US-LOREAL USA PRODUCTS, INC.-2020LOR00005

PATIENT
  Sex: Female
  Weight: 58.96 kg

DRUGS (3)
  1. LA ROCHE POSAY LABORATOIRE DERMATOLOGIQUE ANTHELIOS 50 MINERAL ULTRA LIGHT SUNSCREEN FACE BROAD SPECTRUM SPF 50 [Suspect]
     Active Substance: TITANIUM DIOXIDE\ZINC OXIDE
     Dosage: 2X/DAY, APPLIED TO FACE
     Route: 061
  2. LA ROCHE POSAY LAB. DERMATOLOGIQUE ANTHELIOS SX DAILY MOISTURIZING SUNSCREEN SPF 15 [Suspect]
     Active Substance: AVOBENZONE\ECAMSULE\OCTOCRYLENE
     Dosage: 2X/DAY, APPLIED TO FACE
     Route: 061
  3. LA ROCHE POSAY LAB. DERMATOLOGIQUE ANTHELIOS SX DAILY MOISTURIZING SUNSCREEN SPF 15 [Suspect]
     Active Substance: AVOBENZONE\ECAMSULE\OCTOCRYLENE
     Dosage: 2X/DAY, APPLIED TO FACE
     Route: 061
     Dates: start: 2000

REACTIONS (3)
  - Skin irritation [Recovered/Resolved]
  - Dry skin [Recovered/Resolved]
  - Erythema [Recovered/Resolved]
